FAERS Safety Report 24059984 (Version 1)
Quarter: 2024Q3

REPORT INFORMATION
  Report Type: Spontaneous
  Country: US (occurrence: US)
  Receive Date: 20240708
  Receipt Date: 20240708
  Transmission Date: 20241016
  Serious: No
  Sender: PAREXEL
  Company Number: US-Coherus Biosciences, Inc.-2024-COH-US000232

PATIENT

DRUGS (10)
  1. YUSIMRY [Suspect]
     Active Substance: ADALIMUMAB-AQVH
     Indication: Colitis ulcerative
     Dosage: 80 MG, SINGLE
     Route: 058
     Dates: start: 20240329, end: 20240329
  2. YUSIMRY [Suspect]
     Active Substance: ADALIMUMAB-AQVH
     Dosage: 80 MG, SINGLE
     Route: 058
     Dates: start: 20240406, end: 20240406
  3. CITALOPRAM [Concomitant]
     Active Substance: CITALOPRAM\CITALOPRAM HYDROBROMIDE
     Dosage: 10 MG
  4. AMITRIPTYLINE [Concomitant]
     Active Substance: AMITRIPTYLINE
     Dosage: 30 MG, DAILY
  5. SUMATRIPTAN [Concomitant]
     Active Substance: SUMATRIPTAN
     Dosage: UNK, PRN
  6. VITAMIN D3 [Concomitant]
     Active Substance: CHOLECALCIFEROL
  7. ZOFRAN [Concomitant]
     Active Substance: ONDANSETRON HYDROCHLORIDE
     Dosage: UNK, PRN
  8. HYDROXYZINE [Concomitant]
     Active Substance: HYDROXYZINE HYDROCHLORIDE
  9. LEVBID [Concomitant]
     Active Substance: HYOSCYAMINE SULFATE
  10. LAMICTAL [Concomitant]
     Active Substance: LAMOTRIGINE

REACTIONS (2)
  - Accidental exposure to product [Unknown]
  - Product quality issue [Recovered/Resolved]

NARRATIVE: CASE EVENT DATE: 20240406
